FAERS Safety Report 12135348 (Version 3)
Quarter: 2016Q2

REPORT INFORMATION
  Report Type: Report from Study
  Country: NL (occurrence: NL)
  Receive Date: 20160302
  Receipt Date: 20160415
  Transmission Date: 20160815
  Serious: Yes (Hospitalization, Other)
  Sender: FDA-Public Use
  Company Number: NL-AMGEN-NLDSL2016023840

PATIENT
  Age: 43 Year
  Sex: Female

DRUGS (2)
  1. XGEVA [Suspect]
     Active Substance: DENOSUMAB
     Indication: BREAST CANCER
     Dosage: 120 MG (1.7ML), Q4WK
     Route: 058
  2. XGEVA [Suspect]
     Active Substance: DENOSUMAB
     Dosage: UNK
     Route: 058

REACTIONS (5)
  - Hospice care [Unknown]
  - Pleural effusion [Not Recovered/Not Resolved]
  - Hospitalisation [Unknown]
  - Terminal state [Unknown]
  - Off label use [Unknown]

NARRATIVE: CASE EVENT DATE: 20160202
